FAERS Safety Report 13337707 (Version 1)
Quarter: 2017Q1

REPORT INFORMATION
  Report Type: Spontaneous
  Country: US (occurrence: US)
  Receive Date: 20170315
  Receipt Date: 20170315
  Transmission Date: 20170428
  Serious: Yes (Hospitalization)
  Sender: FDA-Public Use
  Company Number: US-SA-2017SA040943

PATIENT
  Sex: Female

DRUGS (2)
  1. ALIROCUMAB PREFILLED PEN [Concomitant]
     Active Substance: ALIROCUMAB
     Dates: start: 201605
  2. PRALUENT [Suspect]
     Active Substance: ALIROCUMAB
     Dosage: ROUTE: UNDER THE SKIN
     Route: 058
     Dates: start: 201605

REACTIONS (4)
  - Blood phosphorus increased [Unknown]
  - Arthralgia [Unknown]
  - Mobility decreased [Unknown]
  - Pain [Unknown]
